FAERS Safety Report 24238811 (Version 4)
Quarter: 2024Q3

REPORT INFORMATION
  Report Type: Spontaneous
  Country: BE (occurrence: BE)
  Receive Date: 20240822
  Receipt Date: 20240906
  Transmission Date: 20241017
  Serious: Yes (Death, Other)
  Sender: SANDOZ
  Company Number: BE-002147023-PHHY2017BE204453

PATIENT
  Age: 52 Year
  Sex: Female

DRUGS (25)
  1. AMBISOME [Suspect]
     Active Substance: AMPHOTERICIN B
     Indication: Cutaneous leishmaniasis
     Dosage: 4 MG/KG, UNK
     Route: 065
  2. AMBISOME [Suspect]
     Active Substance: AMPHOTERICIN B
     Indication: Hodgkin^s disease
     Dosage: 5 MG/KG, UNK
     Route: 065
     Dates: start: 2009, end: 2009
  3. AMBISOME [Suspect]
     Active Substance: AMPHOTERICIN B
     Indication: Visceral leishmaniasis
     Dosage: UNK, QMO
     Route: 065
     Dates: start: 2009, end: 2009
  4. AMPHOTERICIN B [Suspect]
     Active Substance: AMPHOTERICIN B
     Indication: Visceral leishmaniasis
     Dosage: UNK
     Route: 065
  5. CYCLOSPORINE [Suspect]
     Active Substance: CYCLOSPORINE
     Indication: Cryoglobulinaemia
     Dosage: UNK
     Route: 065
  6. CYCLOSPORINE [Suspect]
     Active Substance: CYCLOSPORINE
     Indication: Rheumatoid arthritis
  7. CYCLOSPORINE [Suspect]
     Active Substance: CYCLOSPORINE
     Indication: Vasculitis
  8. CYCLOPHOSPHAMIDE [Suspect]
     Active Substance: CYCLOPHOSPHAMIDE
     Indication: Hodgkin^s disease
     Dosage: C-MOPP REGIMEN
     Route: 065
  9. ETANERCEPT [Suspect]
     Active Substance: ETANERCEPT
     Indication: Cryoglobulinaemia
     Dosage: UNK
     Route: 065
  10. ETANERCEPT [Suspect]
     Active Substance: ETANERCEPT
     Indication: Rheumatoid arthritis
  11. ETANERCEPT [Suspect]
     Active Substance: ETANERCEPT
     Indication: Vasculitis
  12. METHYLPREDNISOLONE [Suspect]
     Active Substance: METHYLPREDNISOLONE
     Indication: Cryoglobulinaemia
     Route: 065
  13. METHYLPREDNISOLONE [Suspect]
     Active Substance: METHYLPREDNISOLONE
     Indication: Rheumatoid arthritis
  14. METHYLPREDNISOLONE [Suspect]
     Active Substance: METHYLPREDNISOLONE
     Indication: Vasculitis
  15. MILTEFOSINE [Suspect]
     Active Substance: MILTEFOSINE
     Dosage: 100 MG, QD
     Route: 065
  16. MILTEFOSINE [Suspect]
     Active Substance: MILTEFOSINE
     Indication: Immunosuppression
     Dosage: 50 MG, UNK
     Route: 065
  17. PREDNISONE [Suspect]
     Active Substance: PREDNISONE
     Indication: Hodgkin^s disease
     Dosage: C-MOPP REGIMEN
     Route: 065
  18. PREDNISONE [Suspect]
     Active Substance: PREDNISONE
     Indication: Cryoglobulinaemia
     Dosage: UNK
     Route: 065
  19. PROCARBAZINE [Suspect]
     Active Substance: PROCARBAZINE
     Indication: Hodgkin^s disease
     Dosage: C-MOPP REGIMEN
     Route: 065
  20. PROCARBAZINE [Suspect]
     Active Substance: PROCARBAZINE
     Indication: Rheumatoid arthritis
  21. RITUXIMAB [Suspect]
     Active Substance: RITUXIMAB
     Indication: Cryoglobulinaemia
     Dosage: UNK
     Route: 065
     Dates: start: 2009, end: 2010
  22. RITUXIMAB [Suspect]
     Active Substance: RITUXIMAB
     Indication: Immunosuppression
     Dosage: UNK
     Route: 065
  23. RITUXIMAB [Suspect]
     Active Substance: RITUXIMAB
     Indication: Vasculitis
     Dosage: UNK
     Route: 065
  24. RITUXIMAB [Suspect]
     Active Substance: RITUXIMAB
     Indication: Rheumatoid arthritis
  25. VINCRISTINE [Suspect]
     Active Substance: VINCRISTINE
     Indication: Hodgkin^s disease
     Dosage: C-MOPP REGIMEN
     Route: 065

REACTIONS (8)
  - Visceral leishmaniasis [Fatal]
  - Infection [Not Recovered/Not Resolved]
  - Pathogen resistance [Unknown]
  - Drug ineffective for unapproved indication [Not Recovered/Not Resolved]
  - Mucocutaneous leishmaniasis [Unknown]
  - Gastrointestinal disorder [Unknown]
  - Mucocutaneous leishmaniasis [Not Recovered/Not Resolved]
  - Off label use [Unknown]

NARRATIVE: CASE EVENT DATE: 20080101
